FAERS Safety Report 20447532 (Version 4)
Quarter: 2024Q1

REPORT INFORMATION
  Report Type: Report from Study
  Country: US (occurrence: US)
  Receive Date: 20220209
  Receipt Date: 20240207
  Transmission Date: 20240410
  Serious: No
  Sender: FDA-Public Use
  Company Number: US-ORG100014127-2021001308

PATIENT
  Age: 56 Year
  Sex: Female

DRUGS (14)
  1. LYSODREN [Suspect]
     Active Substance: MITOTANE
     Indication: Adrenal gland cancer
     Dosage: 1 TABLET BID
     Route: 048
     Dates: start: 20210904
  2. LYSODREN [Suspect]
     Active Substance: MITOTANE
     Indication: Adrenal gland cancer
     Dosage: 02 TABLETS BID
     Route: 048
  3. LYSODREN [Suspect]
     Active Substance: MITOTANE
     Indication: Adrenal gland cancer
     Dosage: 04 TABLETS TWICE DAILY
     Route: 048
  4. LYSODREN [Suspect]
     Active Substance: MITOTANE
     Indication: Adrenal gland cancer
     Dosage: 04 TABLETS TWICE DAILY
     Route: 048
  5. LYSODREN [Suspect]
     Active Substance: MITOTANE
     Indication: Adrenal gland cancer
     Dosage: 02 TABLETS TWICE DAILY
     Route: 048
  6. DICYCLOMINE [Concomitant]
     Active Substance: DICYCLOMINE HYDROCHLORIDE
     Indication: Product used for unknown indication
     Dosage: 20 MG
  7. DOXYCYCL HYC TAB 100MG [Concomitant]
     Indication: Product used for unknown indication
     Dosage: 20 MG
  8. ONDANSETRON [Concomitant]
     Active Substance: ONDANSETRON
     Indication: Product used for unknown indication
     Dosage: 04 MG
  9. PREDNISONE [Concomitant]
     Active Substance: PREDNISONE
     Indication: Product used for unknown indication
     Dosage: 05 MG
  10. VALACYCLOVIR TAB 500MG [Concomitant]
     Indication: Product used for unknown indication
     Dosage: 500 MG
  11. VITAMIN D2 TAB 2000UNIT [Concomitant]
     Indication: Product used for unknown indication
     Dosage: 2000 UNIT
  12. ZETIA [Concomitant]
     Active Substance: EZETIMIBE
     Indication: Product used for unknown indication
     Dosage: 10 MG
  13. CRESTOR [Concomitant]
     Active Substance: ROSUVASTATIN CALCIUM
     Indication: Product used for unknown indication
  14. hydrocortisone 10 mg [Concomitant]
     Indication: Product used for unknown indication

REACTIONS (8)
  - Pollakiuria [Unknown]
  - Brain fog [Not Recovered/Not Resolved]
  - Hordeolum [Not Recovered/Not Resolved]
  - Urinary tract infection [Unknown]
  - Abdominal discomfort [Unknown]
  - Nausea [Not Recovered/Not Resolved]
  - Fatigue [Unknown]
  - Dizziness [Unknown]

NARRATIVE: CASE EVENT DATE: 20211001
